FAERS Safety Report 9097004 (Version 2)
Quarter: 2013Q1

REPORT INFORMATION
  Report Type: Spontaneous
  Country: CN (occurrence: None)
  Receive Date: 20130123
  Receipt Date: 20130204
  Transmission Date: 20140127
  Serious: Yes (Other)
  Sender: FDA-Public Use
  Company Number: CN-1196292

PATIENT
  Age: 72 Year
  Sex: Male

DRUGS (1)
  1. PREDNISOLONE ACETATE 1% [Suspect]
     Indication: POSTOPERATIVE CARE
     Dosage: 1 % BID OD OPHTHALMIC
     Route: 047

REACTIONS (5)
  - Corneal epithelium defect [None]
  - Anterior chamber inflammation [None]
  - Photophobia [None]
  - Vision blurred [None]
  - Herpes ophthalmic [None]
